FAERS Safety Report 7426969-9 (Version None)
Quarter: 2011Q2

REPORT INFORMATION
  Report Type: 
  Country: None (occurrence: None)
  Receive Date: 20110420
  Receipt Date: 20110321
  Transmission Date: 20111010
  Serious: No
  Sender: FDA-Public Use
  Company Number: US-BAYER-2011-026680

PATIENT
  Sex: Female
  Weight: 57 kg

DRUGS (3)
  1. HEART MEDICATION [Concomitant]
     Dosage: 1 DF, QD
  2. ALEVE (CAPLET) [Suspect]
     Indication: ARTHRITIS
     Dosage: 2 DF, ONCE
     Route: 048
     Dates: start: 20110320
  3. DIURETICS [Concomitant]
     Dosage: 1 DF, QD
     Route: 048

REACTIONS (1)
  - NO ADVERSE EVENT [None]
